FAERS Safety Report 5381133-2 (Version None)
Quarter: 2007Q3

REPORT INFORMATION
  Report Type: 
  Country: None (occurrence: None)
  Receive Date: 20070706
  Receipt Date: 20070626
  Transmission Date: 20080115
  Serious: Yes (Other)
  Sender: FDA-Public Use
  Company Number: JP-PFIZER INC-2007049378

PATIENT
  Age: 80 Year
  Sex: Female

DRUGS (4)
  1. NORVASC [Suspect]
     Indication: HYPERTENSION
     Dosage: DAILY DOSE:5MG
     Route: 048
  2. GASTER [Concomitant]
  3. FLUCONAZOLE [Concomitant]
  4. ALUMINIUM HYDROXIDE W/ MAGNESIUM HYDROXIDE [Concomitant]
     Route: 048

REACTIONS (2)
  - CHROMATURIA [None]
  - ENCEPHALITIC INFECTION [None]
